FAERS Safety Report 6363866-4 (Version None)
Quarter: 2009Q3

REPORT INFORMATION
  Report Type: 
  Country: None (occurrence: None)
  Receive Date: 20090919
  Receipt Date: 20090709
  Transmission Date: 20100115
  Serious: No
  Sender: FDA-Public Use
  Company Number: US-ABBOTT-09P-163-0584345-00

PATIENT
  Sex: Female
  Weight: 54.48 kg

DRUGS (3)
  1. HUMIRA [Suspect]
     Indication: CROHN'S DISEASE
     Dates: start: 20090219, end: 20090701
  2. TECTURNA [Concomitant]
     Indication: BLOOD PRESSURE
  3. NORCO [Concomitant]
     Indication: DRUG USE FOR UNKNOWN INDICATION
     Dosage: 10/325MG TWO TABLETS IN MORNING

REACTIONS (5)
  - EPICONDYLITIS [None]
  - FALL [None]
  - LETHARGY [None]
  - PAIN [None]
  - TREMOR [None]
